FAERS Safety Report 16938350 (Version 1)
Quarter: 2019Q4

REPORT INFORMATION
  Report Type: Spontaneous
  Country: KR (occurrence: KR)
  Receive Date: 20191019
  Receipt Date: 20191019
  Transmission Date: 20200122
  Serious: Yes (Hospitalization, Other)
  Sender: FDA-Public Use
  Company Number: KR-ACCORD-158408

PATIENT
  Age: 21 Year
  Sex: Female

DRUGS (4)
  1. PREDNISONE. [Suspect]
     Active Substance: PREDNISONE
     Indication: IMMUNOSUPPRESSION
     Dosage: ONCE DAILY, DECREASED TO 5 MG ONCE DAILY
  2. TACROLIMUS. [Suspect]
     Active Substance: TACROLIMUS
     Indication: IMMUNOSUPPRESSION
     Dosage: TWICE A DAY, DECREASED TO 1 MG TWICE A DAY
  3. SULFAMETHOXAZOLE/TRIMETHOPRIM [Concomitant]
     Indication: SUPERINFECTION
  4. MYCOPHENOLIC ACID. [Suspect]
     Active Substance: MYCOPHENOLIC ACID
     Indication: IMMUNOSUPPRESSION
     Dosage: TWICE A DAY

REACTIONS (2)
  - Varicella zoster virus infection [Recovered/Resolved]
  - Hepatitis fulminant [Recovered/Resolved]
